FAERS Safety Report 4273733-8 (Version None)
Quarter: 2004Q1

REPORT INFORMATION
  Report Type: 
  Country: None (occurrence: None)
  Receive Date: 20040116
  Receipt Date: 20040116
  Transmission Date: 20041129
  Serious: Yes (Hospitalization, Other)
  Sender: FDA-Public Use
  Company Number: None

PATIENT
  Age: 41 Year
  Sex: Male
  Weight: 67.6 kg

DRUGS (6)
  1. CIPROFLOXACIN [Suspect]
     Indication: EPIDIDYMITIS
     Dosage: 500MG BID
     Dates: start: 20031028, end: 20031030
  2. DILANTIN [Concomitant]
  3. DILTIAZEM [Concomitant]
  4. M.V.I. [Concomitant]
  5. KCL TAB [Concomitant]
  6. MAG OXIDE [Concomitant]

REACTIONS (5)
  - ANURIA [None]
  - GROIN PAIN [None]
  - NAUSEA [None]
  - NEPHRITIS INTERSTITIAL [None]
  - VOMITING [None]
